FAERS Safety Report 6452696-0 (Version None)
Quarter: 2009Q4

REPORT INFORMATION
  Report Type: 
  Country: None (occurrence: None)
  Receive Date: 20091124
  Receipt Date: 20091111
  Transmission Date: 20100525
  Serious: Yes (Other)
  Sender: FDA-Public Use
  Company Number: US-PFIZER INC-2009296692

PATIENT
  Age: 41 Year
  Sex: Male

DRUGS (4)
  1. LINEZOLID [Suspect]
     Dosage: 600 MG, 2X/DAY
     Route: 048
  2. CARVEDILOL [Concomitant]
     Dosage: 3.125 MG, 2X/DAY
  3. THIAMINE [Concomitant]
  4. FOLIC ACID [Concomitant]

REACTIONS (3)
  - ABULIA [None]
  - APATHY [None]
  - ENCEPHALOPATHY [None]
